FAERS Safety Report 10886610 (Version 1)
Quarter: 2015Q1

REPORT INFORMATION
  Report Type: Spontaneous
  Country: US (occurrence: US)
  Receive Date: 20150304
  Receipt Date: 20150304
  Transmission Date: 20150721
  Serious: No
  Sender: FDA-Public Use
  Company Number: US-GLAXOSMITHKLINE-US2015GSK028693

PATIENT
  Age: 86 Year
  Sex: Male
  Weight: 71.8 kg

DRUGS (1)
  1. VOTRIENT [Suspect]
     Active Substance: PAZOPANIB HYDROCHLORIDE
     Indication: BLADDER CANCER
     Dosage: 800 MG, QD
     Dates: start: 20150129, end: 20150221

REACTIONS (5)
  - Therapy cessation [Unknown]
  - Dehydration [Unknown]
  - Nausea [Unknown]
  - Vomiting [Unknown]
  - Lethargy [Unknown]

NARRATIVE: CASE EVENT DATE: 20150221
